FAERS Safety Report 4989493-9 (Version None)
Quarter: 2006Q2

REPORT INFORMATION
  Report Type: 
  Country: None (occurrence: None)
  Receive Date: 20060502
  Receipt Date: 20050407
  Transmission Date: 20061013
  Serious: Yes (Hospitalization, Other)
  Sender: FDA-Public Use
  Company Number: US-MERCK-0504USA00966

PATIENT
  Age: 56 Year
  Sex: Female
  Weight: 70 kg

DRUGS (19)
  1. VIOXX [Suspect]
     Indication: SPINAL COLUMN STENOSIS
     Route: 048
     Dates: start: 20020215, end: 20040513
  2. CELEBREX [Concomitant]
     Route: 065
  3. COZAAR [Concomitant]
     Route: 065
  4. LANOXIN [Concomitant]
     Route: 065
  5. LASIX [Concomitant]
     Route: 065
  6. GLYBURIDE [Concomitant]
     Route: 065
  7. PREMARIN [Concomitant]
     Route: 065
  8. LIPITOR [Concomitant]
     Route: 065
  9. SINGULAIR [Concomitant]
     Route: 065
  10. PROTONIX [Concomitant]
     Route: 065
  11. GLUCOPHAGE [Concomitant]
     Route: 065
  12. COUMADIN [Concomitant]
     Route: 065
  13. BISOPROLOL [Concomitant]
     Route: 065
  14. POTASSIUM (UNSPECIFIED) [Concomitant]
     Route: 065
  15. SPIRONOLACTONE [Concomitant]
     Route: 065
  16. ALLEGRA [Concomitant]
     Route: 065
  17. [THERAPY UNSPECIFIED] [Concomitant]
     Route: 065
  18. ALPRAZOLAM [Concomitant]
     Route: 065
  19. NASONEX [Concomitant]
     Route: 065

REACTIONS (24)
  - ABDOMINAL PAIN [None]
  - ACUTE CORONARY SYNDROME [None]
  - ANAEMIA [None]
  - BLOOD GLUCOSE INCREASED [None]
  - BRONCHITIS [None]
  - CARDIAC DISORDER [None]
  - CARDIAC FAILURE CONGESTIVE [None]
  - CARDIOMYOPATHY [None]
  - CAROTID ARTERY STENOSIS [None]
  - CEREBELLAR INFARCTION [None]
  - CEREBROVASCULAR ACCIDENT [None]
  - CHRONIC OBSTRUCTIVE PULMONARY DISEASE [None]
  - CORONARY ARTERY DISEASE [None]
  - DEPRESSION [None]
  - GASTRITIS [None]
  - HAEMATOMA [None]
  - HEADACHE [None]
  - HYPERGLYCAEMIA [None]
  - LUMBAR SPINAL STENOSIS [None]
  - MYOCARDIAL INFARCTION [None]
  - SLEEP APNOEA SYNDROME [None]
  - SPINAL CLAUDICATION [None]
  - THROMBOSIS [None]
  - TRANSIENT ISCHAEMIC ATTACK [None]
